FAERS Safety Report 4263106-6 (Version None)
Quarter: 2004Q1

REPORT INFORMATION
  Report Type: 
  Country: None (occurrence: None)
  Receive Date: 20040102
  Receipt Date: 20040102
  Transmission Date: 20041129
  Serious: Yes (Hospitalization)
  Sender: FDA-Public Use
  Company Number: None

PATIENT
  Sex: Male
  Weight: 93.6 kg

DRUGS (3)
  1. AMIODARONE HCL [Suspect]
     Indication: ATRIAL FIBRILLATION
     Dosage: 200 MG PO QD
     Route: 048
     Dates: start: 19970101
  2. AMIODARONE HCL [Suspect]
     Indication: VENTRICULAR TACHYCARDIA
     Dosage: 200 MG PO QD
     Route: 048
     Dates: start: 19970101
  3. LEVOTHYROXINE SODIUM [Concomitant]

REACTIONS (3)
  - ASCITES [None]
  - CARDIAC FAILURE CONGESTIVE [None]
  - HYPOTHYROIDISM [None]
